FAERS Safety Report 20813109 (Version 1)
Quarter: 2022Q2

REPORT INFORMATION
  Report Type: Spontaneous
  Country: US (occurrence: None)
  Receive Date: 20220510
  Receipt Date: 20220510
  Transmission Date: 20220720
  Serious: No
  Sender: FDA-Public Use
  Company Number: None

PATIENT
  Age: 78 Year
  Sex: Female
  Weight: 61.19 kg

DRUGS (19)
  1. KEYTRUDA [Suspect]
     Active Substance: PEMBROLIZUMAB
     Indication: Lung neoplasm malignant
     Dates: start: 20220404, end: 20220425
  2. ALBUTEROL [Concomitant]
     Active Substance: ALBUTEROL
  3. BELBUCA [Concomitant]
     Active Substance: BUPRENORPHINE HYDROCHLORIDE
  4. BIOTIN [Concomitant]
     Active Substance: BIOTIN
  5. CITRACAL+D [Concomitant]
  6. ELIQUIS [Concomitant]
     Active Substance: APIXABAN
  7. FEXOFENADINE [Concomitant]
     Active Substance: FEXOFENADINE HYDROCHLORIDE
  8. GABAPENTIN [Concomitant]
     Active Substance: GABAPENTIN
  9. LIDOCAINE [Concomitant]
     Active Substance: LIDOCAINE
  10. LISINOPRIL [Concomitant]
     Active Substance: LISINOPRIL
  11. MONTELUKAST [Concomitant]
     Active Substance: MONTELUKAST SODIUM
  12. MULTIVITAMIN + MINERAL [Concomitant]
  13. PREDNISONE [Concomitant]
     Active Substance: PREDNISONE
  14. PROCHLORPERAZINE [Concomitant]
     Active Substance: PROCHLORPERAZINE
  15. PROLIA [Concomitant]
     Active Substance: DENOSUMAB
  16. PYRIDOXINE [Concomitant]
     Active Substance: PYRIDOXINE
  17. SENNOSIDES [Concomitant]
     Active Substance: SENNOSIDES
  18. TRELEGY ELLIPTA [Concomitant]
     Active Substance: FLUTICASONE FUROATE\UMECLIDINIUM BROMIDE\VILANTEROL TRIFENATATE
  19. VITAMIN D3 [Concomitant]
     Active Substance: CHOLECALCIFEROL

REACTIONS (1)
  - Disease progression [None]
